FAERS Safety Report 13755647 (Version 1)
Quarter: 2017Q3

REPORT INFORMATION
  Report Type: Spontaneous
  Country: FR (occurrence: FR)
  Receive Date: 20170714
  Receipt Date: 20170714
  Transmission Date: 20171127
  Serious: Yes (Life-Threatening, Other)
  Sender: FDA-Public Use
  Company Number: FR-PFIZER INC-2017306344

PATIENT
  Age: 58 Year
  Sex: Male

DRUGS (7)
  1. CORGARD [Concomitant]
     Active Substance: NADOLOL
     Dosage: UNK
  2. PANTOPRAZOLE [Concomitant]
     Active Substance: PANTOPRAZOLE
     Dosage: UNK
  3. BROMAZEPAM ISOMED [Concomitant]
     Dosage: UNK
  4. LYRICA [Concomitant]
     Active Substance: PREGABALIN
     Dosage: UNK
  5. DRIPTANE [Concomitant]
     Active Substance: OXYBUTYNIN
     Dosage: UNK
  6. PREVISCAN [Concomitant]
     Active Substance: FLUINDIONE
     Dosage: UNK
  7. CORDARONE [Suspect]
     Active Substance: AMIODARONE HYDROCHLORIDE
     Indication: ATRIAL FIBRILLATION
     Dosage: 1 DF, 3X/DAY
     Route: 048
     Dates: start: 20170614, end: 20170617

REACTIONS (6)
  - Cardiogenic shock [Recovered/Resolved]
  - Adrenal insufficiency [Unknown]
  - Hyperthyroidism [Recovering/Resolving]
  - Bradycardia [Unknown]
  - Toxic goitre [Recovering/Resolving]
  - Respiratory distress [Unknown]

NARRATIVE: CASE EVENT DATE: 20170617
